FAERS Safety Report 7934997-X (Version None)
Quarter: 2011Q4

REPORT INFORMATION
  Report Type: 
  Country: None (occurrence: None)
  Receive Date: 20111122
  Receipt Date: 20111115
  Transmission Date: 20120403
  Serious: Yes (Other)
  Sender: FDA-Public Use
  Company Number: GB-JNJFOC-20111108039

PATIENT
  Sex: Female

DRUGS (2)
  1. SUDAFED CONGESTION + SINUS PAIN RELIEF [Suspect]
     Route: 065
  2. SUDAFED CONGESTION + SINUS PAIN RELIEF [Suspect]
     Indication: NASOPHARYNGITIS
     Route: 065

REACTIONS (1)
  - ANAPHYLACTIC REACTION [None]
